FAERS Safety Report 6328044-3 (Version None)
Quarter: 2009Q3

REPORT INFORMATION
  Report Type: 
  Country: None (occurrence: None)
  Receive Date: 20090825
  Receipt Date: 20080912
  Transmission Date: 20100115
  Serious: No
  Sender: FDA-Public Use
  Company Number: US-ABBOTT-08P-163-0475897-00

PATIENT
  Sex: Female
  Weight: 88.076 kg

DRUGS (4)
  1. SYNTHROID [Suspect]
     Indication: THYROID DISORDER
     Route: 048
     Dates: start: 20050801, end: 20070801
  2. SYNTHROID [Suspect]
     Route: 048
     Dates: start: 20070801
  3. HEMOTROPE [Concomitant]
     Indication: HORMONE REPLACEMENT THERAPY
     Dosage: AT NIGHT
     Route: 050
     Dates: start: 20060301
  4. ALLEGRA D 24 HOUR [Concomitant]
     Indication: DRUG USE FOR UNKNOWN INDICATION
     Route: 048

REACTIONS (9)
  - ASTHENIA [None]
  - DRUG DEPENDENCE [None]
  - DRUG INEFFECTIVE [None]
  - FATIGUE [None]
  - HEART RATE INCREASED [None]
  - LOSS OF CONSCIOUSNESS [None]
  - MIDDLE INSOMNIA [None]
  - PALPITATIONS [None]
  - PERIPHERAL COLDNESS [None]
